FAERS Safety Report 8099787-9 (Version None)
Quarter: 2012Q1

REPORT INFORMATION
  Report Type: 
  Country: None (occurrence: None)
  Receive Date: 20120129
  Receipt Date: 20110926
  Transmission Date: 20120608
  Serious: No
  Sender: FDA-Public Use
  Company Number: US-ABBOTT-11P-163-0858270-00

PATIENT
  Sex: Male

DRUGS (5)
  1. ARMODAFINIL [Concomitant]
     Indication: PRODUCT USED FOR UNKNOWN INDICATION
  2. HUMIRA [Suspect]
     Indication: CROHN'S DISEASE
     Dates: start: 20110401
  3. MINOCYCLINE HCL [Concomitant]
     Indication: URINARY TRACT INFECTION
  4. HUMIRA [Suspect]
     Indication: COLITIS ULCERATIVE
  5. LAMISIL [Concomitant]
     Indication: PRODUCT USED FOR UNKNOWN INDICATION

REACTIONS (9)
  - LABORATORY TEST ABNORMAL [None]
  - DERMATITIS CONTACT [None]
  - GENITAL INFECTION FUNGAL [None]
  - ORAL FUNGAL INFECTION [None]
  - DYSURIA [None]
  - INJECTION SITE PAIN [None]
  - INJECTION SITE ERYTHEMA [None]
  - INJECTION SITE SWELLING [None]
  - INJECTION SITE NODULE [None]
